FAERS Safety Report 9259110 (Version 1)
Quarter: 2013Q2

REPORT INFORMATION
  Report Type: Spontaneous
  Country: US (occurrence: US)
  Receive Date: 20130426
  Receipt Date: 20130426
  Transmission Date: 20140414
  Serious: No
  Sender: FDA-Public Use
  Company Number: US-ASTRAZENECA-2013SE23077

PATIENT
  Age: 79 Year
  Sex: Female
  Weight: 58.5 kg

DRUGS (6)
  1. CRESTOR [Suspect]
     Indication: BLOOD CHOLESTEROL INCREASED
     Route: 048
     Dates: start: 20130328, end: 20130331
  2. CRESTOR [Suspect]
     Indication: BLOOD CHOLESTEROL INCREASED
     Route: 048
     Dates: start: 20130308
  3. LORAZAPAM [Concomitant]
  4. CALCIUM [Concomitant]
  5. VIATMIN D [Concomitant]
  6. ANTIHISTAMINE [Concomitant]

REACTIONS (2)
  - Feeling hot [Recovered/Resolved]
  - Local swelling [Recovered/Resolved]
